FAERS Safety Report 12192354 (Version 1)
Quarter: 2016Q1

REPORT INFORMATION
  Report Type: Spontaneous
  Country: US (occurrence: US)
  Receive Date: 20160318
  Receipt Date: 20160318
  Transmission Date: 20160526
  Serious: Yes (Hospitalization, Other)
  Sender: FDA-Public Use
  Company Number: US-MYLANLABS-2016M1011110

PATIENT

DRUGS (1)
  1. CHATEAL [Suspect]
     Active Substance: ETHINYL ESTRADIOL\LEVONORGESTREL
     Indication: CONTRACEPTION
     Dosage: 0.15 MG/0.03 MG, QD
     Route: 048
     Dates: start: 20160216, end: 20160303

REACTIONS (3)
  - Pulmonary embolism [Not Recovered/Not Resolved]
  - Deep vein thrombosis [Recovered/Resolved]
  - Loss of consciousness [Recovered/Resolved]

NARRATIVE: CASE EVENT DATE: 201603
